FAERS Safety Report 5343817-1 (Version None)
Quarter: 2007Q2

REPORT INFORMATION
  Report Type: 
  Country: None (occurrence: None)
  Receive Date: 20070604
  Receipt Date: 20070524
  Transmission Date: 20071010
  Serious: Yes (Hospitalization)
  Sender: FDA-Public Use
  Company Number: FR-BAXTER-2007BH004783

PATIENT
  Age: 36 Year
  Sex: Female

DRUGS (1)
  1. KIOVIG [Suspect]
     Indication: WISKOTT-ALDRICH SYNDROME
     Dosage: DOSE UNIT:UNKNOWN
     Route: 042
     Dates: start: 20070502, end: 20070502

REACTIONS (4)
  - BACK PAIN [None]
  - CHILLS [None]
  - MALAISE [None]
  - PYREXIA [None]
